FAERS Safety Report 7281740-6 (Version None)
Quarter: 2011Q1

REPORT INFORMATION
  Report Type: 
  Country: None (occurrence: None)
  Receive Date: 20110208
  Receipt Date: 20100528
  Transmission Date: 20110831
  Serious: Yes (Other)
  Sender: FDA-Public Use
  Company Number: US-PFIZER INC-2009283236

PATIENT
  Sex: Female

DRUGS (1)
  1. SUTENT [Suspect]
     Indication: RENAL CANCER
     Dosage: 15 MG, UNK

REACTIONS (5)
  - BLISTER [None]
  - PAIN IN EXTREMITY [None]
  - DISEASE PROGRESSION [None]
  - RENAL CANCER [None]
  - GAIT DISTURBANCE [None]
